FAERS Safety Report 4849335-9 (Version None)
Quarter: 2005Q4

REPORT INFORMATION
  Report Type: 
  Country: None (occurrence: None)
  Receive Date: 20051207
  Receipt Date: 20051128
  Transmission Date: 20060501
  Serious: Yes (Hospitalization, Other)
  Sender: FDA-Public Use
  Company Number: KII-2005-0019919

PATIENT
  Age: 41 Year
  Sex: Female

DRUGS (6)
  1. OXYCODONE HCL [Suspect]
     Indication: INTENTIONAL DRUG MISUSE
     Dosage: ORAL
     Route: 048
  2. HYDROCODONE BITARTRATE + ACETAMINOPHEN [Suspect]
     Indication: INTENTIONAL DRUG MISUSE
     Dosage: ORAL
     Route: 048
  3. BENZODIAZEPINE DERIVATIVES() [Suspect]
     Indication: INTENTIONAL DRUG MISUSE
  4. CALCIUM CHANNEL BLOCKERS () [Suspect]
  5. ANTIHYPERTENSIVES () [Suspect]
  6. SERUMLIPIDREDUCING AGENTS() [Suspect]

REACTIONS (9)
  - AGITATION [None]
  - BLOOD PHOSPHORUS INCREASED [None]
  - BLOOD POTASSIUM DECREASED [None]
  - COMA [None]
  - DYSARTHRIA [None]
  - ELECTROCARDIOGRAM QT CORRECTED INTERVAL PROLONGED [None]
  - ELECTROCARDIOGRAM T WAVE PEAKED [None]
  - MENTAL IMPAIRMENT [None]
  - POLYSUBSTANCE ABUSE [None]
